FAERS Safety Report 5047356-7 (Version None)
Quarter: 2006Q3

REPORT INFORMATION
  Report Type: 
  Country: None (occurrence: None)
  Receive Date: 20060703
  Receipt Date: 20060626
  Transmission Date: 20061208
  Serious: Yes (Life-Threatening, Hospitalization, Disabling)
  Sender: FDA-Public Use
  Company Number: 2002-03-1008

PATIENT
  Age: 46 Year
  Sex: Female
  Weight: 74.3899 kg

DRUGS (3)
  1. PEG-INTRON [Suspect]
     Indication: HEPATITIS C
     Dosage: 96 MCG QWK SUBCUTANEOUS
     Route: 058
     Dates: start: 20011123, end: 20020208
  2. REBETOL [Suspect]
     Indication: HEPATITIS C
     Dosage: 1000 MG QD ORAL
     Route: 048
     Dates: start: 20011123, end: 20020215
  3. ZOLOFT [Suspect]
     Indication: DEPRESSION
     Dosage: 100 MG QD ORAL
     Route: 048

REACTIONS (4)
  - DIALYSIS [None]
  - POLYTRAUMATISM [None]
  - RENAL FAILURE [None]
  - SUICIDE ATTEMPT [None]
